FAERS Safety Report 7932648-1 (Version None)
Quarter: 2011Q4

REPORT INFORMATION
  Report Type: 
  Country: None (occurrence: None)
  Receive Date: 20111122
  Receipt Date: 20111114
  Transmission Date: 20120403
  Serious: Yes (Hospitalization)
  Sender: FDA-Public Use
  Company Number: IT-BRISTOL-MYERS SQUIBB COMPANY-16233751

PATIENT
  Age: 80 Year
  Sex: Male

DRUGS (6)
  1. DOXAZOSIN MESYLATE [Concomitant]
  2. CARVEDILOL [Concomitant]
  3. COUMADIN [Suspect]
     Indication: ATRIAL FIBRILLATION
     Dosage: 1DF=1 UNIT,INTERRUPTED:04-OCT-2011.
     Route: 048
     Dates: start: 20100601
  4. SIMVASTATIN [Concomitant]
  5. OMEPRAZOLE [Concomitant]
  6. COSOPT [Concomitant]
     Dosage: COSOPT EYE DROPS.

REACTIONS (2)
  - INTERNATIONAL NORMALISED RATIO INCREASED [None]
  - ANAEMIA [None]
